FAERS Safety Report 21880331 (Version 1)
Quarter: 2023Q1

REPORT INFORMATION
  Report Type: Spontaneous
  Country: US (occurrence: None)
  Receive Date: 20230117
  Receipt Date: 20230117
  Transmission Date: 20230417
  Serious: No
  Sender: FDA-Public Use
  Company Number: None

PATIENT
  Sex: Female
  Weight: 51.8 kg

DRUGS (21)
  1. CAPECITABINE [Suspect]
     Active Substance: CAPECITABINE
     Dosage: FREQUENCY : TWICE A WEEK;?
     Route: 048
  2. ACETAMINOPHEN [Concomitant]
  3. 7-OXO-DHEA POWDER [Concomitant]
  4. VITAMIN C [Concomitant]
  5. BIOTIN [Concomitant]
     Active Substance: BIOTIN
  6. B COMPLEX [Concomitant]
  7. BLUE-GREEN-ALGAE BULK [Concomitant]
  8. CALCIUM-MAG-B COMPLEX [Concomitant]
  9. OYSCO 500+D ORAL TABLET [Concomitant]
  10. VITAMIN D3 [Concomitant]
  11. VITAMIN B12-FOLIC ACID [Concomitant]
  12. ESTRACE ORAL TABLET [Concomitant]
  13. LACTOBAC 66-BIFIDO [Concomitant]
  14. LEVOTHYROXINE SODIUM [Concomitant]
  15. PROVERA [Concomitant]
  16. PHENOBARBITAL [Concomitant]
  17. VALACYCLOVIR [Concomitant]
     Active Substance: VALACYCLOVIR HYDROCHLORIDE
  18. VITAMIN A [Concomitant]
  19. ZINC SULFATE [Concomitant]
  20. ZINC SULFATE [Concomitant]
  21. 7 MUSHROOM COMPLEX CAP [Concomitant]

REACTIONS (2)
  - Fatigue [None]
  - Neutropenia [None]
